FAERS Safety Report 6993172-6 (Version None)
Quarter: 2010Q3

REPORT INFORMATION
  Report Type: 
  Country: None (occurrence: None)
  Receive Date: 20100917
  Receipt Date: 20090803
  Transmission Date: 20110219
  Serious: Yes (Other)
  Sender: FDA-Public Use
  Company Number: US-ASTRAZENECA-2009UW21710

PATIENT
  Sex: Male

DRUGS (1)
  1. SEROQUEL [Suspect]
     Dosage: 100 - 400 MG DAILY
     Dates: start: 20050101

REACTIONS (7)
  - BLOOD PRESSURE INCREASED [None]
  - DYSPNOEA [None]
  - MUSCLE TWITCHING [None]
  - NERVOUSNESS [None]
  - RASH [None]
  - URTICARIA [None]
  - WEIGHT INCREASED [None]
